FAERS Safety Report 7958853-6 (Version None)
Quarter: 2011Q4

REPORT INFORMATION
  Report Type: 
  Country: None (occurrence: None)
  Receive Date: 20111206
  Receipt Date: 20111129
  Transmission Date: 20120403
  Serious: Yes (Other)
  Sender: FDA-Public Use
  Company Number: US-BRISTOL-MYERS SQUIBB COMPANY-16256729

PATIENT
  Age: 57 Year
  Sex: Female

DRUGS (2)
  1. CYMBALTA [Concomitant]
  2. ABILIFY [Suspect]
     Dosage: STARTED AS 5MG,THEN RECEIVED 7.5MG DOSE INCR TO 10MG(TAKEN FOR 3 MTHS)THEN RECEIVED 7.5MG AGAIN

REACTIONS (2)
  - WRONG TECHNIQUE IN DRUG USAGE PROCESS [None]
  - HERPES VIRUS INFECTION [None]
